FAERS Safety Report 18069059 (Version 1)
Quarter: 2020Q3

REPORT INFORMATION
  Report Type: Spontaneous
  Country: FR (occurrence: FR)
  Receive Date: 20200725
  Receipt Date: 20200725
  Transmission Date: 20201103
  Serious: Yes (Hospitalization)
  Sender: FDA-Public Use
  Company Number: FR-CADILA HEALTHCARE LIMITED-FR-ZYDUS-021729

PATIENT

DRUGS (17)
  1. FUROSEMIDE. [Concomitant]
     Active Substance: FUROSEMIDE
     Dosage: ()
  2. TERCIAN [Concomitant]
     Active Substance: CYAMEMAZINE
  3. INEXIUM [Concomitant]
     Active Substance: ESOMEPRAZOLE
     Dosage: ()
  4. BISOPROLOL [Concomitant]
     Active Substance: BISOPROLOL
     Dosage: ()
  5. LANTUS [Concomitant]
     Active Substance: INSULIN GLARGINE
     Dosage: ()
  6. RAMIPRIL. [Suspect]
     Active Substance: RAMIPRIL
     Indication: HYPERTENSION
     Dosage: 5 MILLIGRAM,(INTERVAL :1 DAYS)
     Route: 048
     Dates: start: 201606, end: 201712
  7. FIDAXOMICINE [Suspect]
     Active Substance: FIDAXOMICIN
     Indication: CLOSTRIDIUM DIFFICILE COLITIS
     Dosage: 400 MILLIGRAM,(INTERVAL :1 DAYS)
     Route: 048
     Dates: start: 20171102, end: 20171104
  8. APROVEL [Concomitant]
     Active Substance: IRBESARTAN
     Dosage: ()
  9. NOVORAPID [Concomitant]
     Active Substance: INSULIN ASPART
     Dosage: ()
  10. DULOXETINE. [Concomitant]
     Active Substance: DULOXETINE
     Dosage: ()
  11. LYRICA [Concomitant]
     Active Substance: PREGABALIN
     Dosage: ()
  12. STILNOX [Concomitant]
     Active Substance: ZOLPIDEM TARTRATE
     Dosage: ()
  13. FLAGYL [Suspect]
     Active Substance: METRONIDAZOLE\METRONIDAZOLE HYDROCHLORIDE
     Indication: CLOSTRIDIUM DIFFICILE COLITIS
     Dosage: 1500 MILLIGRAM,(INTERVAL :1 DAYS)
     Route: 048
     Dates: start: 20171104, end: 20171110
  14. KARDEGIC [Concomitant]
     Active Substance: ASPIRIN DL-LYSINE
     Dosage: ()
  15. PREVISCAN [Concomitant]
     Dosage: ()
  16. VALIUM [Concomitant]
     Active Substance: DIAZEPAM
     Dosage: ()
  17. CEFTRIAXONE. [Suspect]
     Active Substance: CEFTRIAXONE
     Indication: BACTERIAL INFECTION
     Dosage: 2 GRAM,(INTERVAL :1 DAYS)
     Route: 042
     Dates: start: 20171031, end: 20171103

REACTIONS (1)
  - Drug reaction with eosinophilia and systemic symptoms [Recovering/Resolving]

NARRATIVE: CASE EVENT DATE: 20171211
